FAERS Safety Report 6973518-5 (Version None)
Quarter: 2010Q3

REPORT INFORMATION
  Report Type: 
  Country: None (occurrence: None)
  Receive Date: 20100909
  Receipt Date: 20100903
  Transmission Date: 20110219
  Serious: Yes (Other)
  Sender: FDA-Public Use
  Company Number: TR-ROXANE LABORATORIES, INC.-2010-RO-01186RO

PATIENT
  Age: 70 Year
  Sex: Female

DRUGS (4)
  1. LITHIUM CARBONATE [Suspect]
     Indication: BIPOLAR DISORDER
     Dosage: 300 MG
  2. LITHIUM CARBONATE [Suspect]
     Dosage: 600 MG
  3. CANDESARTAN CILEXETIL [Suspect]
     Indication: HYPERTENSION
     Dosage: 16 MG
  4. HYDROCHLOROTHIAZIDE [Suspect]
     Indication: HYPERTENSION
     Dosage: 12.5 MG

REACTIONS (5)
  - AORTIC VALVE INCOMPETENCE [None]
  - ELECTROCARDIOGRAM ABNORMAL [None]
  - MITRAL VALVE INCOMPETENCE [None]
  - PERICARDIAL EFFUSION [None]
  - THERAPEUTIC AGENT TOXICITY [None]
